FAERS Safety Report 9912189 (Version 1)
Quarter: 2014Q1

REPORT INFORMATION
  Report Type: Spontaneous
  Country: PL (occurrence: PL)
  Receive Date: 20140220
  Receipt Date: 20140220
  Transmission Date: 20141002
  Serious: Yes (Hospitalization, Other)
  Sender: FDA-Public Use
  Company Number: PL-009507513-1402POL008275

PATIENT
  Age: 58 Year
  Sex: Male
  Weight: 85 kg

DRUGS (3)
  1. VICTRELIS [Suspect]
     Indication: CHRONIC HEPATITIS C
     Dosage: 4 TIMES A DAY, 2400MG TOTOAL DAILY DOSE
     Route: 048
     Dates: start: 20131024, end: 20131227
  2. PEGINTRON [Suspect]
     Indication: CHRONIC HEPATITIS C
     Dosage: 100 MICROGRAM ONCE A WEEK
     Route: 058
     Dates: start: 20131024, end: 20131227
  3. REBETOL [Suspect]
     Indication: CHRONIC HEPATITIS C
     Dosage: 1000MG TOTAL DAILY DOSE
     Route: 048
     Dates: start: 20131024, end: 20131227

REACTIONS (3)
  - Pneumonia [Recovered/Resolved]
  - Hepatic failure [Recovered/Resolved]
  - Inappropriate schedule of drug administration [Unknown]
